FAERS Safety Report 8229146-7 (Version None)
Quarter: 2012Q1

REPORT INFORMATION
  Report Type: 
  Country: None (occurrence: None)
  Receive Date: 20120322
  Receipt Date: 20120319
  Transmission Date: 20120608
  Serious: Yes (Death, Life-Threatening, Hospitalization)
  Sender: FDA-Public Use
  Company Number: US-TEVA-328737USA

PATIENT
  Age: 75 Year
  Sex: Male

DRUGS (1)
  1. TREANDA [Suspect]
     Indication: MULTIPLE MYELOMA
     Dosage: 3.5714 MILLIGRAM;
     Route: 042
     Dates: start: 20110614, end: 20111228

REACTIONS (2)
  - RESPIRATORY DISTRESS [None]
  - CARDIAC ARREST [None]
